FAERS Safety Report 18445499 (Version 1)
Quarter: 2020Q4

REPORT INFORMATION
  Report Type: Spontaneous
  Country: KR (occurrence: KR)
  Receive Date: 20201030
  Receipt Date: 20201030
  Transmission Date: 20210114
  Serious: Yes (Hospitalization)
  Sender: FDA-Public Use
  Company Number: NVSC2020KR288270

PATIENT
  Age: 53 Year
  Sex: Male

DRUGS (163)
  1. ALBUMIN [Concomitant]
     Active Substance: ALBUMIN HUMAN
     Dosage: 100 ML, QD
     Route: 065
     Dates: start: 20130710, end: 20130710
  2. ALBUMIN [Concomitant]
     Active Substance: ALBUMIN HUMAN
     Dosage: 100 ML, QD
     Route: 065
     Dates: start: 20130712, end: 20130712
  3. ALBUMIN [Concomitant]
     Active Substance: ALBUMIN HUMAN
     Dosage: 200 ML, QD
     Route: 065
     Dates: start: 20130720, end: 20130720
  4. ALBUMIN [Concomitant]
     Active Substance: ALBUMIN HUMAN
     Dosage: 200 ML, QD
     Route: 065
     Dates: start: 20130729, end: 20130730
  5. AMBROXOL [Concomitant]
     Active Substance: AMBROXOL
     Dosage: 30 MG, QD
     Route: 048
     Dates: start: 20130805, end: 20130809
  6. CALCIUM GLUCONATE. [Concomitant]
     Active Substance: CALCIUM GLUCONATE
     Indication: PRODUCT USED FOR UNKNOWN INDICATION
     Dosage: 20 ML, QD
     Route: 065
     Dates: start: 20130707, end: 20130708
  7. CALCIUM GLUCONATE. [Concomitant]
     Active Substance: CALCIUM GLUCONATE
     Dosage: 20 ML, QD
     Route: 065
     Dates: start: 20130731, end: 20130801
  8. CASPOFUNGIN [Concomitant]
     Active Substance: CASPOFUNGIN
     Indication: PRODUCT USED FOR UNKNOWN INDICATION
     Dosage: UNK
     Route: 042
     Dates: start: 20130909
  9. CHLORPHENAMINE [Concomitant]
     Active Substance: CHLORPHENIRAMINE MALEATE
     Dosage: 4 MG, QD
     Route: 042
     Dates: start: 20130715, end: 20130716
  10. ENTECAVIR. [Concomitant]
     Active Substance: ENTECAVIR
     Indication: PRODUCT USED FOR UNKNOWN INDICATION
     Dosage: 0.5 MG, QD
     Route: 048
     Dates: start: 20130628, end: 20130702
  11. ENTECAVIR. [Concomitant]
     Active Substance: ENTECAVIR
     Dosage: 0.5 MG, QD
     Route: 048
     Dates: start: 20130816
  12. FUROSEMIDE. [Concomitant]
     Active Substance: FUROSEMIDE
     Dosage: 20 MG, QD
     Route: 030
     Dates: start: 20130710, end: 20130710
  13. FUROSEMIDE. [Concomitant]
     Active Substance: FUROSEMIDE
     Dosage: 20 MG, QD
     Route: 030
     Dates: start: 20130914, end: 20130921
  14. IMMUNGLOBULIN [Concomitant]
     Active Substance: HUMAN IMMUNOGLOBULIN G
     Indication: PRODUCT USED FOR UNKNOWN INDICATION
     Dosage: 2500 MG, QD
     Route: 042
     Dates: start: 20130704, end: 20130708
  15. MAGNESIUM SULFATE. [Concomitant]
     Active Substance: MAGNESIUM SULFATE
     Indication: PRODUCT USED FOR UNKNOWN INDICATION
     Dosage: 20 ML, QD
     Route: 065
     Dates: start: 20130704, end: 20130706
  16. MEGESTROL [Concomitant]
     Active Substance: MEGESTROL
     Indication: PRODUCT USED FOR UNKNOWN INDICATION
     Dosage: 10 ML, QD
     Route: 048
     Dates: start: 20130712, end: 20130717
  17. TRAMADOL. [Concomitant]
     Active Substance: TRAMADOL
     Dosage: 50 MG, QD
     Route: 042
     Dates: start: 20130726, end: 20130726
  18. TACROLIMUS. [Suspect]
     Active Substance: TACROLIMUS
     Dosage: 1 MG, QD
     Route: 065
     Dates: start: 20130904, end: 20130919
  19. TACROLIMUS. [Suspect]
     Active Substance: TACROLIMUS
     Dosage: 0.5 MG, QD
     Route: 065
     Dates: start: 20130925
  20. MICAFUNGIN. [Suspect]
     Active Substance: MICAFUNGIN SODIUM
     Indication: PRODUCT USED FOR UNKNOWN INDICATION
     Dosage: 100 MG, QD
     Route: 042
     Dates: start: 20130704, end: 20130724
  21. ALBUMIN [Concomitant]
     Active Substance: ALBUMIN HUMAN
     Dosage: 100 ML, QD
     Route: 065
     Dates: start: 20130704, end: 20130708
  22. CEFPODOXIME [Concomitant]
     Active Substance: CEFPODOXIME
     Indication: PRODUCT USED FOR UNKNOWN INDICATION
     Dosage: 100 MG, QD
     Route: 048
     Dates: start: 20130809, end: 20130813
  23. CEFTRIAXONE. [Concomitant]
     Active Substance: CEFTRIAXONE
     Dosage: 2000 MG, QD
     Route: 042
     Dates: start: 20130726, end: 20130804
  24. CHLORPHENAMINE [Concomitant]
     Active Substance: CHLORPHENIRAMINE MALEATE
     Dosage: 4 MG, QD
     Route: 042
     Dates: start: 20130710, end: 20130711
  25. ENOXAPARIN [Concomitant]
     Active Substance: ENOXAPARIN
     Indication: PRODUCT USED FOR UNKNOWN INDICATION
     Dosage: 60 MG, QD
     Route: 058
     Dates: start: 20130714, end: 20130716
  26. ESOMEPRAZOLE. [Concomitant]
     Active Substance: ESOMEPRAZOLE MAGNESIUM
     Dosage: 80 MG, QD
     Route: 042
     Dates: start: 20130704, end: 20130717
  27. HIDROCLOROTIAZIDE [Concomitant]
     Active Substance: HYDROCHLOROTHIAZIDE
     Indication: PRODUCT USED FOR UNKNOWN INDICATION
     Dosage: 12.5 MG, QD
     Route: 048
     Dates: start: 20130628, end: 20130703
  28. HIDROCLOROTIAZIDE [Concomitant]
     Active Substance: HYDROCHLOROTHIAZIDE
     Dosage: 12.5 MG, QD
     Route: 048
     Dates: start: 20130708, end: 20130726
  29. INSULIN [Concomitant]
     Active Substance: INSULIN NOS
     Dosage: 16 IU, QD
     Route: 058
     Dates: start: 20130710, end: 20130725
  30. MEGESTROL [Concomitant]
     Active Substance: MEGESTROL
     Dosage: 20 ML, QD
     Route: 048
     Dates: start: 20130712, end: 20130717
  31. POTASSIUM CHLORIDE. [Concomitant]
     Active Substance: POTASSIUM CHLORIDE
     Indication: PRODUCT USED FOR UNKNOWN INDICATION
     Dosage: 20 ML, QD
     Route: 065
     Dates: start: 20130704, end: 20130706
  32. TACROLIMUS. [Concomitant]
     Active Substance: TACROLIMUS
     Indication: PRODUCT USED FOR UNKNOWN INDICATION
     Dosage: 1.76 MG, QD
     Route: 042
     Dates: start: 20130705, end: 20130709
  33. MYCOPHENOLIC ACID. [Suspect]
     Active Substance: MYCOPHENOLIC ACID
     Indication: PRODUCT USED FOR UNKNOWN INDICATION
     Dosage: 500 MG, QD
     Route: 048
     Dates: start: 20130704, end: 20130725
  34. MYCOPHENOLIC ACID. [Suspect]
     Active Substance: MYCOPHENOLIC ACID
     Dosage: 500 MG, QD
     Route: 048
     Dates: start: 20130803, end: 20130829
  35. TACROLIMUS. [Suspect]
     Active Substance: TACROLIMUS
     Dosage: 1.5 MG, QD
     Route: 048
     Dates: start: 20130802
  36. METHYLPREDNISOLONE. [Suspect]
     Active Substance: METHYLPREDNISOLONE
     Dosage: 12 MG, QD
     Route: 048
     Dates: start: 20130804, end: 20130804
  37. METHYLPREDNISOLONE. [Suspect]
     Active Substance: METHYLPREDNISOLONE
     Dosage: 8 MG, QD
     Route: 048
     Dates: start: 20130809
  38. ALBUMIN [Concomitant]
     Active Substance: ALBUMIN HUMAN
     Dosage: 100 MG, QD
     Route: 065
     Dates: start: 20130729, end: 20130730
  39. ALBUMIN [Concomitant]
     Active Substance: ALBUMIN HUMAN
     Dosage: 100 MG, QD
     Route: 065
     Dates: start: 20130801, end: 20130802
  40. ALBUMIN [Concomitant]
     Active Substance: ALBUMIN HUMAN
     Dosage: 100 MG, QD
     Route: 065
     Dates: start: 20130914, end: 20130921
  41. AMBROXOL [Concomitant]
     Active Substance: AMBROXOL
     Indication: PRODUCT USED FOR UNKNOWN INDICATION
     Dosage: 15 MG, QD
     Route: 042
     Dates: start: 20130704, end: 20130710
  42. BISACODYL. [Concomitant]
     Active Substance: BISACODYL
     Indication: PRODUCT USED FOR UNKNOWN INDICATION
     Dosage: 20 MG, QD
     Route: 065
     Dates: start: 20130702, end: 20130703
  43. CALCIUM GLUCONATE. [Concomitant]
     Active Substance: CALCIUM GLUCONATE
     Dosage: 20 ML, QD
     Route: 065
     Dates: start: 20130715, end: 20130716
  44. CEFTRIAXONE. [Concomitant]
     Active Substance: CEFTRIAXONE
     Indication: PRODUCT USED FOR UNKNOWN INDICATION
     Dosage: 2000 MG, QD
     Route: 042
     Dates: start: 20130702, end: 20130712
  45. CEFTRIAXONE. [Concomitant]
     Active Substance: CEFTRIAXONE
     Dosage: 2000 MG, QD
     Route: 042
     Dates: start: 20130830, end: 20130916
  46. ESOMEPRAZOLE. [Concomitant]
     Active Substance: ESOMEPRAZOLE MAGNESIUM
     Indication: PRODUCT USED FOR UNKNOWN INDICATION
     Dosage: 40 MG, QD
     Route: 042
     Dates: start: 20130704, end: 20130717
  47. ESOMEPRAZOLE. [Concomitant]
     Active Substance: ESOMEPRAZOLE MAGNESIUM
     Dosage: 40 MG, QD
     Route: 042
     Dates: start: 20130726, end: 20130804
  48. FUROSEMIDE. [Concomitant]
     Active Substance: FUROSEMIDE
     Indication: PRODUCT USED FOR UNKNOWN INDICATION
     Dosage: 20 MG, QD
     Route: 030
     Dates: start: 20130704, end: 20130708
  49. FUROSEMIDE. [Concomitant]
     Active Substance: FUROSEMIDE
     Dosage: 40 MG, QD
     Route: 030
     Dates: start: 20130710, end: 20130710
  50. FUROSEMIDE. [Concomitant]
     Active Substance: FUROSEMIDE
     Dosage: 40 MG, QD
     Route: 030
     Dates: start: 20130712, end: 20130712
  51. FUROSEMIDE. [Concomitant]
     Active Substance: FUROSEMIDE
     Dosage: 40 MG, QD
     Route: 030
     Dates: start: 20130801, end: 20130802
  52. INSULIN [Concomitant]
     Active Substance: INSULIN NOS
     Dosage: 50 IU, QD
     Route: 058
     Dates: start: 20130916, end: 20130916
  53. NYSTATIN. [Concomitant]
     Active Substance: NYSTATIN
     Indication: PRODUCT USED FOR UNKNOWN INDICATION
     Dosage: UNK
     Route: 048
     Dates: start: 20130917, end: 20131008
  54. OLMESARTAN MEDOXOMIL. [Concomitant]
     Active Substance: OLMESARTAN MEDOXOMIL
     Dosage: 20 MG, QD
     Route: 048
     Dates: start: 20130805, end: 20130831
  55. PETHIDINE [Concomitant]
     Active Substance: MEPERIDINE
     Dosage: 25 MG, QD
     Route: 042
     Dates: start: 20130723, end: 20130723
  56. PHYTOMENADIONE [Concomitant]
     Active Substance: PHYTONADIONE
     Indication: PRODUCT USED FOR UNKNOWN INDICATION
     Dosage: 10 MG, QD
     Route: 042
     Dates: start: 20130723, end: 20130723
  57. MULTI VITAMIN [Concomitant]
     Active Substance: VITAMINS
     Indication: PRODUCT USED FOR UNKNOWN INDICATION
     Dosage: 1 TABLET, QD
     Route: 048
     Dates: start: 20130809
  58. SUCRALFATE. [Concomitant]
     Active Substance: SUCRALFATE
     Indication: PRODUCT USED FOR UNKNOWN INDICATION
     Dosage: UNK
     Route: 048
     Dates: start: 20130903, end: 20131008
  59. SULTAMICILLIN [Concomitant]
     Active Substance: SULTAMICILLIN
     Indication: PRODUCT USED FOR UNKNOWN INDICATION
     Dosage: UNK
     Route: 048
     Dates: start: 20131002, end: 20131008
  60. TRAMADOL. [Concomitant]
     Active Substance: TRAMADOL
     Indication: PRODUCT USED FOR UNKNOWN INDICATION
     Dosage: 50 MG, QD
     Route: 042
     Dates: start: 20130706, end: 20130707
  61. TRAMADOL. [Concomitant]
     Active Substance: TRAMADOL
     Dosage: 50 MG, QD
     Route: 042
     Dates: start: 20130728, end: 20130729
  62. URSODEOXYCHOLIC ACID [Concomitant]
     Active Substance: URSODIOL
     Indication: PRODUCT USED FOR UNKNOWN INDICATION
     Dosage: 200 MG, QD
     Route: 048
     Dates: start: 20130711, end: 20130712
  63. VALACICLOVIR [Concomitant]
     Active Substance: VALACYCLOVIR HYDROCHLORIDE
     Indication: PRODUCT USED FOR UNKNOWN INDICATION
     Dosage: 500 MG, QD
     Route: 048
     Dates: start: 20130711, end: 20130712
  64. WARFARIN [Concomitant]
     Active Substance: WARFARIN
     Dosage: 3 MG, QD
     Route: 065
     Dates: start: 20130801, end: 20130804
  65. SIMULECT [Suspect]
     Active Substance: BASILIXIMAB
     Dosage: 20 MG, QD
     Route: 042
     Dates: start: 20130707, end: 20130707
  66. METHYLPREDNISOLONE. [Suspect]
     Active Substance: METHYLPREDNISOLONE
     Dosage: 12 MG, QD
     Route: 048
     Dates: start: 20130717, end: 20130725
  67. ALBUMIN [Concomitant]
     Active Substance: ALBUMIN HUMAN
     Dosage: 100 ML, QD
     Route: 065
     Dates: start: 20130720, end: 20130720
  68. ALBUMIN [Concomitant]
     Active Substance: ALBUMIN HUMAN
     Dosage: 100 ML, QD
     Route: 065
     Dates: start: 20130729, end: 20130730
  69. ALBUMIN [Concomitant]
     Active Substance: ALBUMIN HUMAN
     Dosage: 200 ML, QD
     Route: 065
     Dates: start: 20130914, end: 20130921
  70. ALPROSTADIL. [Concomitant]
     Active Substance: ALPROSTADIL
     Indication: PRODUCT USED FOR UNKNOWN INDICATION
     Dosage: 320 MCG, QD
     Route: 042
     Dates: start: 20130704, end: 20130713
  71. ANTITHROMBIN III [Concomitant]
     Active Substance: ANTITHROMBIN III HUMAN
     Indication: PRODUCT USED FOR UNKNOWN INDICATION
     Dosage: 5000 IU, QD
     Route: 042
     Dates: start: 20130704, end: 20130710
  72. CALCIUM GLUCONATE. [Concomitant]
     Active Substance: CALCIUM GLUCONATE
     Dosage: 20 ML, QD
     Route: 065
     Dates: start: 20130710, end: 20130711
  73. ESOMEPRAZOLE. [Concomitant]
     Active Substance: ESOMEPRAZOLE MAGNESIUM
     Indication: PRODUCT USED FOR UNKNOWN INDICATION
     Dosage: 40 MG, QD
     Route: 048
     Dates: start: 20130717, end: 20130725
  74. FAMOTIDINE. [Concomitant]
     Active Substance: FAMOTIDINE
     Indication: PRODUCT USED FOR UNKNOWN INDICATION
     Dosage: 20 MG, QD
     Route: 042
     Dates: start: 20130820
  75. FENTANYL. [Concomitant]
     Active Substance: FENTANYL
     Dosage: 4.2 MG, QD
     Route: 065
     Dates: start: 20130830, end: 20131002
  76. FUROSEMIDE. [Concomitant]
     Active Substance: FUROSEMIDE
     Dosage: 40 MG, QD
     Route: 030
     Dates: start: 20130720, end: 20130720
  77. HEPATITIS B IMMUNE GLOBULIN [Concomitant]
     Active Substance: HUMAN HEPATITIS B VIRUS IMMUNE GLOBULIN
     Indication: PRODUCT USED FOR UNKNOWN INDICATION
     Dosage: 10000 IU, QD
     Route: 042
     Dates: start: 20130704
  78. HIDROCLOROTIAZIDE [Concomitant]
     Active Substance: HYDROCHLOROTHIAZIDE
     Dosage: 12.5 MG, QD
     Route: 048
     Dates: start: 20130902, end: 20130902
  79. INSULIN [Concomitant]
     Active Substance: INSULIN NOS
     Indication: PRODUCT USED FOR UNKNOWN INDICATION
     Dosage: 50 IU, QD
     Route: 058
     Dates: start: 20130704, end: 20130710
  80. INSULIN [Concomitant]
     Active Substance: INSULIN NOS
     Dosage: 16 IU, QD
     Route: 058
     Dates: start: 20130804
  81. MAGNESIUM SULFATE. [Concomitant]
     Active Substance: MAGNESIUM SULFATE
     Dosage: 20 ML, QD
     Route: 065
     Dates: start: 20130708, end: 20130708
  82. MAGNESIUM SULFATE. [Concomitant]
     Active Substance: MAGNESIUM SULFATE
     Dosage: 20 ML, QD
     Route: 065
     Dates: start: 20130730, end: 20130730
  83. MEGESTROL [Concomitant]
     Active Substance: MEGESTROL
     Dosage: 20 ML, QD
     Route: 048
     Dates: start: 20130803
  84. METRONIDAZOLE. [Concomitant]
     Active Substance: METRONIDAZOLE
     Indication: PRODUCT USED FOR UNKNOWN INDICATION
     Dosage: 500 MG, QD
     Route: 042
     Dates: start: 20130726, end: 20130806
  85. OLMESARTAN MEDOXOMIL. [Concomitant]
     Active Substance: OLMESARTAN MEDOXOMIL
     Indication: PRODUCT USED FOR UNKNOWN INDICATION
     Dosage: 20 MG, QD
     Route: 048
     Dates: start: 20130628, end: 20130702
  86. TRAMADOL. [Concomitant]
     Active Substance: TRAMADOL
     Dosage: 50 MG, QD
     Route: 042
     Dates: start: 20130801, end: 20130801
  87. MACROGOL [Concomitant]
     Active Substance: POLYETHYLENE GLYCOLS
     Indication: PRODUCT USED FOR UNKNOWN INDICATION
     Dosage: UNK
     Route: 048
     Dates: start: 20130702, end: 20130702
  88. METHYLPREDNISOLONE. [Suspect]
     Active Substance: METHYLPREDNISOLONE
     Indication: PRODUCT USED FOR UNKNOWN INDICATION
     Dosage: 8 MG, QD
     Route: 048
     Dates: start: 20130317, end: 20130725
  89. METHYLPREDNISOLONE. [Suspect]
     Active Substance: METHYLPREDNISOLONE
     Dosage: 8 MG, QD
     Route: 048
     Dates: start: 20130804, end: 20130804
  90. ALBUMIN [Concomitant]
     Active Substance: ALBUMIN HUMAN
     Dosage: 100 MG, QD
     Route: 065
     Dates: start: 20130712, end: 20130712
  91. ALBUMIN [Concomitant]
     Active Substance: ALBUMIN HUMAN
     Dosage: 200 ML, QD
     Route: 065
     Dates: start: 20130704, end: 20130708
  92. AMBROXOL [Concomitant]
     Active Substance: AMBROXOL
     Dosage: 15 MG, QD
     Route: 042
     Dates: start: 20130726, end: 20130805
  93. AMBROXOL [Concomitant]
     Active Substance: AMBROXOL
     Dosage: 15 MCG, QD
     Route: 065
     Dates: start: 20130726, end: 20130805
  94. AMBROXOL [Concomitant]
     Active Substance: AMBROXOL
     Indication: PRODUCT USED FOR UNKNOWN INDICATION
     Dosage: 30 MG, QD
     Route: 048
     Dates: start: 20130711, end: 20130725
  95. AMIODARONE [Concomitant]
     Active Substance: AMIODARONE
     Indication: PRODUCT USED FOR UNKNOWN INDICATION
     Dosage: 300 MG, QD
     Route: 042
     Dates: start: 20130705, end: 20130705
  96. CIPROFLOXACIN. [Concomitant]
     Active Substance: CIPROFLOXACIN
     Indication: PRODUCT USED FOR UNKNOWN INDICATION
     Dosage: 400 MG, QD
     Route: 042
     Dates: start: 20130820
  97. FUROSEMIDE. [Concomitant]
     Active Substance: FUROSEMIDE
     Dosage: 20 MG, QD
     Route: 030
     Dates: start: 20130801, end: 20130802
  98. FUROSEMIDE. [Concomitant]
     Active Substance: FUROSEMIDE
     Dosage: 40 MG, QD
     Route: 030
     Dates: start: 20130729, end: 20130730
  99. HALOPERIDOL. [Concomitant]
     Active Substance: HALOPERIDOL
     Indication: PRODUCT USED FOR UNKNOWN INDICATION
     Dosage: 5 MG, QD
     Route: 048
     Dates: start: 20130706, end: 20130706
  100. HIDROCORTISON [Concomitant]
     Active Substance: HYDROCORTISONE
     Dosage: 100 MG, QD
     Route: 065
     Dates: start: 20130713, end: 20130713
  101. METHYLPREDNISOLONE. [Concomitant]
     Active Substance: METHYLPREDNISOLONE
     Indication: PRODUCT USED FOR UNKNOWN INDICATION
     Dosage: 20 MG, QD
     Route: 042
     Dates: start: 20130704, end: 20130716
  102. METOCLOPRAMIDE. [Concomitant]
     Active Substance: METOCLOPRAMIDE
     Indication: PRODUCT USED FOR UNKNOWN INDICATION
     Dosage: 10 MG, QD
     Route: 042
     Dates: start: 20130712, end: 20130712
  103. OLMESARTAN MEDOXOMIL. [Concomitant]
     Active Substance: OLMESARTAN MEDOXOMIL
     Dosage: 20 MG, QD
     Route: 048
     Dates: start: 20130703, end: 20130726
  104. POTASSIUM PHOSPHATE [Concomitant]
     Active Substance: POTASSIUM PHOSPHATE
     Indication: PRODUCT USED FOR UNKNOWN INDICATION
     Dosage: 20 ML, QD
     Route: 042
     Dates: start: 20130705, end: 20130714
  105. SULFAMETHOXAZOLE AND TRIMETHOPRIM [Concomitant]
     Active Substance: SULFAMETHOXAZOLE\TRIMETHOPRIM
     Indication: PRODUCT USED FOR UNKNOWN INDICATION
     Dosage: 2 DF, QD
     Route: 048
     Dates: start: 20130711, end: 20130711
  106. TACROLIMUS. [Concomitant]
     Active Substance: TACROLIMUS
     Dosage: 1.76 MG, QD
     Route: 042
     Dates: start: 20130730, end: 20130802
  107. TACROLIMUS. [Concomitant]
     Active Substance: TACROLIMUS
     Dosage: 2 MG, QD
     Route: 042
     Dates: start: 20130730, end: 20130802
  108. TRAMADOL. [Concomitant]
     Active Substance: TRAMADOL
     Dosage: 50 MG, QD
     Route: 042
     Dates: start: 20130723, end: 20130724
  109. WARFARIN [Concomitant]
     Active Substance: WARFARIN
     Indication: PRODUCT USED FOR UNKNOWN INDICATION
     Dosage: 3 MG, QD
     Route: 065
     Dates: start: 20130717, end: 20130719
  110. WARFARIN [Concomitant]
     Active Substance: WARFARIN
     Dosage: 4 MG, QD
     Route: 065
     Dates: start: 20130717, end: 20130719
  111. ALBUMIN [Concomitant]
     Active Substance: ALBUMIN HUMAN
     Dosage: 100 ML, QD
     Route: 065
     Dates: start: 20130801, end: 20130802
  112. ALBUMIN [Concomitant]
     Active Substance: ALBUMIN HUMAN
     Dosage: 200 ML, QD
     Route: 065
     Dates: start: 20130710, end: 20130710
  113. ALBUMIN [Concomitant]
     Active Substance: ALBUMIN HUMAN
     Dosage: 200 ML, QD
     Route: 065
     Dates: start: 20130712, end: 20130712
  114. AMBROXOL [Concomitant]
     Active Substance: AMBROXOL
     Dosage: 15 MCG, QD
     Route: 042
     Dates: start: 20130704, end: 20130710
  115. CASPOFUNGIN [Concomitant]
     Active Substance: CASPOFUNGIN
     Dosage: UNK
     Route: 042
     Dates: start: 20130917
  116. CHLORPHENAMINE [Concomitant]
     Active Substance: CHLORPHENIRAMINE MALEATE
     Indication: PRODUCT USED FOR UNKNOWN INDICATION
     Dosage: 4 MG, QD
     Route: 042
     Dates: start: 20130628, end: 20130628
  117. ESOMEPRAZOLE. [Concomitant]
     Active Substance: ESOMEPRAZOLE MAGNESIUM
     Dosage: 80 MG, QD
     Route: 042
     Dates: start: 20130726, end: 20130804
  118. FUROSEMIDE. [Concomitant]
     Active Substance: FUROSEMIDE
     Dosage: 20 MG, QD
     Route: 030
     Dates: start: 20130712, end: 20130712
  119. FUROSEMIDE. [Concomitant]
     Active Substance: FUROSEMIDE
     Dosage: 40 MG, QD
     Route: 030
     Dates: start: 20130914, end: 20130921
  120. GANCICLOVIR. [Concomitant]
     Active Substance: GANCICLOVIR
     Indication: PRODUCT USED FOR UNKNOWN INDICATION
     Dosage: 125 MG, QD
     Route: 042
     Dates: start: 20130704, end: 20130710
  121. MAGNESIUM SULFATE. [Concomitant]
     Active Substance: MAGNESIUM SULFATE
     Dosage: 20 ML, QD
     Route: 065
     Dates: start: 20130720, end: 20130720
  122. MEGESTROL [Concomitant]
     Active Substance: MEGESTROL
     Dosage: 10 ML, QD
     Route: 048
     Dates: start: 20130803
  123. MEGESTROL [Concomitant]
     Active Substance: MEGESTROL
     Dosage: 20 ML, QD
     Route: 048
     Dates: start: 20130720, end: 20130725
  124. PETHIDINE [Concomitant]
     Active Substance: MEPERIDINE
     Indication: PRODUCT USED FOR UNKNOWN INDICATION
     Dosage: 25 MG, QD
     Route: 042
     Dates: start: 20130704, end: 20130704
  125. RANITIDINE. [Concomitant]
     Active Substance: RANITIDINE
     Indication: PRODUCT USED FOR UNKNOWN INDICATION
     Dosage: 50 MG, QD
     Route: 042
     Dates: start: 20130702, end: 20130703
  126. SULFAMETHOXAZOLE AND TRIMETHOPRIM [Concomitant]
     Active Substance: SULFAMETHOXAZOLE\TRIMETHOPRIM
     Dosage: 2 TABLET, QD
     Route: 048
     Dates: start: 20130809
  127. TRIAZOLAM. [Concomitant]
     Active Substance: TRIAZOLAM
     Dosage: 1 TABLET, QD
     Route: 048
     Dates: start: 20130802, end: 20130819
  128. WARFARIN [Concomitant]
     Active Substance: WARFARIN
     Dosage: 4 MG, QD
     Route: 065
     Dates: start: 20130801, end: 20130804
  129. AMLODIPINE [Concomitant]
     Active Substance: AMLODIPINE BESYLATE
     Indication: PRODUCT USED FOR UNKNOWN INDICATION
     Dosage: 5 MG, QD
     Route: 048
     Dates: start: 20130702, end: 20130702
  130. SIMULECT [Suspect]
     Active Substance: BASILIXIMAB
     Indication: PRODUCT USED FOR UNKNOWN INDICATION
     Dosage: 20 MG, QD
     Route: 042
     Dates: start: 20130702, end: 20130702
  131. TACROLIMUS. [Suspect]
     Active Substance: TACROLIMUS
     Indication: PRODUCT USED FOR UNKNOWN INDICATION
     Dosage: 1.5 MG, QD
     Route: 048
     Dates: start: 20130708, end: 20130725
  132. ALBUMIN [Concomitant]
     Active Substance: ALBUMIN HUMAN
     Dosage: 100 MG, QD
     Route: 065
     Dates: start: 20130710, end: 20130710
  133. ALBUMIN [Concomitant]
     Active Substance: ALBUMIN HUMAN
     Dosage: 100 MG, QD
     Route: 065
     Dates: start: 20130720, end: 20130720
  134. ALBUMIN [Concomitant]
     Active Substance: ALBUMIN HUMAN
     Dosage: 100 ML, QD
     Route: 065
     Dates: start: 20130914, end: 20130921
  135. ALBUMIN [Concomitant]
     Active Substance: ALBUMIN HUMAN
     Dosage: 200 ML, QD
     Route: 065
     Dates: start: 20130801, end: 20130802
  136. CHLORPHENAMINE [Concomitant]
     Active Substance: CHLORPHENIRAMINE MALEATE
     Dosage: 4 MG, QD
     Route: 042
     Dates: start: 20130713, end: 20130713
  137. ESOMEPRAZOLE. [Concomitant]
     Active Substance: ESOMEPRAZOLE MAGNESIUM
     Dosage: 40 MG, QD
     Route: 042
     Dates: start: 20130902, end: 20131001
  138. ESOMEPRAZOLE. [Concomitant]
     Active Substance: ESOMEPRAZOLE MAGNESIUM
     Dosage: 80 MG, QD
     Route: 042
     Dates: start: 20130902, end: 20131001
  139. ESOMEPRAZOLE. [Concomitant]
     Active Substance: ESOMEPRAZOLE MAGNESIUM
     Dosage: 40 MG, QD
     Route: 048
     Dates: start: 20130805
  140. FUROSEMIDE. [Concomitant]
     Active Substance: FUROSEMIDE
     Dosage: 20 MG, QD
     Route: 030
     Dates: start: 20130729, end: 20130730
  141. HIDROCLOROTIAZIDE [Concomitant]
     Active Substance: HYDROCHLOROTHIAZIDE
     Dosage: 12.5 MG, QD
     Route: 048
     Dates: start: 20130805, end: 20130831
  142. HIDROCORTISON [Concomitant]
     Active Substance: HYDROCORTISONE
     Dosage: 100 MG, QD
     Route: 065
     Dates: start: 20130715, end: 20130716
  143. INSULIN [Concomitant]
     Active Substance: INSULIN NOS
     Dosage: 50 IU, QD
     Route: 058
     Dates: start: 20130726, end: 20130804
  144. METHYLPREDNISOLONE. [Concomitant]
     Active Substance: METHYLPREDNISOLONE
     Dosage: 20 MG, QD
     Route: 042
     Dates: start: 20130730, end: 20130803
  145. METHYLPREDNISOLONE. [Concomitant]
     Active Substance: METHYLPREDNISOLONE
     Dosage: 50 MG, QD
     Route: 042
     Dates: start: 20130704, end: 20130716
  146. TACROLIMUS. [Concomitant]
     Active Substance: TACROLIMUS
     Dosage: 2 MG, QD
     Route: 042
     Dates: start: 20130705, end: 20130709
  147. TRAMADOL. [Concomitant]
     Active Substance: TRAMADOL
     Dosage: 50 MG, QD
     Route: 042
     Dates: start: 20130710, end: 20130711
  148. METHYLPREDNISOLONE. [Suspect]
     Active Substance: METHYLPREDNISOLONE
     Dosage: 12 MG, QD
     Route: 048
     Dates: start: 20130809
  149. MULTI VITAMIN [Concomitant]
     Active Substance: VITAMINS
     Indication: PRODUCT USED FOR UNKNOWN INDICATION
     Dosage: 1 VIAL, QD
     Route: 042
     Dates: start: 20130729, end: 20130804
  150. ACICLOVIR [Concomitant]
     Active Substance: ACYCLOVIR
     Indication: PRODUCT USED FOR UNKNOWN INDICATION
     Dosage: 200 MG, QD
     Route: 048
     Dates: start: 20130809
  151. ALBUMIN [Concomitant]
     Active Substance: ALBUMIN HUMAN
     Indication: PRODUCT USED FOR UNKNOWN INDICATION
     Dosage: 100 MG, QD
     Route: 065
     Dates: start: 20130704, end: 20130708
  152. CHLORPHENAMINE [Concomitant]
     Active Substance: CHLORPHENIRAMINE MALEATE
     Dosage: 4 MG, QD
     Route: 042
     Dates: start: 20130701, end: 20130702
  153. FENTANYL. [Concomitant]
     Active Substance: FENTANYL
     Indication: PRODUCT USED FOR UNKNOWN INDICATION
     Dosage: 50 MCG, QD
     Route: 065
     Dates: start: 20130706, end: 20130706
  154. FUROSEMIDE. [Concomitant]
     Active Substance: FUROSEMIDE
     Dosage: 20 MG, QD
     Route: 030
     Dates: start: 20130720, end: 20130720
  155. FUROSEMIDE. [Concomitant]
     Active Substance: FUROSEMIDE
     Dosage: 40 MG, QD
     Route: 030
     Dates: start: 20130704, end: 20130708
  156. HIDROCORTISON [Concomitant]
     Active Substance: HYDROCORTISONE
     Indication: PRODUCT USED FOR UNKNOWN INDICATION
     Dosage: 100 MG, QD
     Route: 065
     Dates: start: 20130711, end: 20130711
  157. MAGNESIUM SULFATE. [Concomitant]
     Active Substance: MAGNESIUM SULFATE
     Dosage: 20 ML, QD
     Route: 065
     Dates: start: 20130710, end: 20130713
  158. MEGESTROL [Concomitant]
     Active Substance: MEGESTROL
     Dosage: 10 ML, QD
     Route: 048
     Dates: start: 20130720, end: 20130725
  159. METHYLPREDNISOLONE. [Concomitant]
     Active Substance: METHYLPREDNISOLONE
     Dosage: 50 MG, QD
     Route: 042
     Dates: start: 20130730, end: 20130803
  160. OLMESARTAN MEDOXOMIL. [Concomitant]
     Active Substance: OLMESARTAN MEDOXOMIL
     Dosage: 20 MG, QD
     Route: 048
     Dates: start: 20130905
  161. TRIAZOLAM. [Concomitant]
     Active Substance: TRIAZOLAM
     Indication: PRODUCT USED FOR UNKNOWN INDICATION
     Dosage: 1 TABLET, QD
     Route: 048
     Dates: start: 20130709, end: 20130725
  162. KANAMYCIN [Concomitant]
     Active Substance: KANAMYCIN A SULFATE
     Indication: PRODUCT USED FOR UNKNOWN INDICATION
     Dosage: 3 G, QD
     Route: 065
     Dates: start: 20130702, end: 20130702
  163. LACTULOSE. [Concomitant]
     Active Substance: LACTULOSE
     Indication: PRODUCT USED FOR UNKNOWN INDICATION
     Dosage: 15 MG, QD
     Route: 048
     Dates: start: 20130630, end: 20130702

REACTIONS (6)
  - Postoperative wound infection [Recovered/Resolved]
  - Hepatic vein thrombosis [Recovered/Resolved]
  - Pyrexia [Recovered/Resolved]
  - Appendicitis [Recovered/Resolved]
  - Gastritis [Recovered/Resolved]
  - Oesophageal candidiasis [Recovered/Resolved]

NARRATIVE: CASE EVENT DATE: 20130725
